FAERS Safety Report 24231322 (Version 1)
Quarter: 2024Q3

REPORT INFORMATION
  Report Type: Spontaneous
  Country: US (occurrence: US)
  Receive Date: 20240821
  Receipt Date: 20240821
  Transmission Date: 20241017
  Serious: Yes (Other)
  Sender: APOTEX
  Company Number: US-APOTEX-2024AP009412

PATIENT

DRUGS (2)
  1. MELPHALAN [Suspect]
     Active Substance: MELPHALAN
     Indication: Retinoblastoma
     Dosage: 0.4 MG/KG OR LESS PER CYCLE
     Route: 013
  2. HEPARIN [Concomitant]
     Active Substance: HEPARIN SODIUM
     Indication: Anticoagulant therapy
     Dosage: 70-75 IU/KG
     Route: 065

REACTIONS (1)
  - Febrile neutropenia [Unknown]
